FAERS Safety Report 11574445 (Version 1)
Quarter: 2015Q3

REPORT INFORMATION
  Report Type: Spontaneous
  Country: DE (occurrence: DE)
  Receive Date: 20150930
  Receipt Date: 20150930
  Transmission Date: 20151125
  Serious: Yes (Other)
  Sender: FDA-Public Use
  Company Number: DE-WEST-WARD PHARMACEUTICALS CORP.-DE-H14001-15-01730

PATIENT
  Age: 34 Year
  Sex: Male

DRUGS (1)
  1. CLINDAMYCIN [Suspect]
     Active Substance: CLINDAMYCIN\CLINDAMYCIN PHOSPHATE
     Indication: PROPHYLAXIS
     Route: 065

REACTIONS (3)
  - Oesophagitis ulcerative [Recovering/Resolving]
  - Weight decreased [Unknown]
  - Toxicity to various agents [Recovering/Resolving]
